FAERS Safety Report 25753307 (Version 2)
Quarter: 2025Q3

REPORT INFORMATION
  Report Type: Spontaneous
  Country: JP (occurrence: JP)
  Receive Date: 20250903
  Receipt Date: 20250926
  Transmission Date: 20251021
  Serious: Yes (Other)
  Sender: NOVARTIS
  Company Number: JP-002147023-NVSJ2022JP003558

PATIENT
  Age: 72 Year
  Sex: Male

DRUGS (6)
  1. GLIVEC [Suspect]
     Active Substance: IMATINIB MESYLATE
     Indication: Chronic myeloid leukaemia
     Route: 048
     Dates: start: 2010
  2. GLIVEC [Suspect]
     Active Substance: IMATINIB MESYLATE
     Route: 048
     Dates: start: 20210420
  3. GLIVEC [Suspect]
     Active Substance: IMATINIB MESYLATE
     Route: 048
     Dates: start: 20210611, end: 20210621
  4. BOSUTINIB [Concomitant]
     Active Substance: BOSUTINIB
     Indication: Chronic myeloid leukaemia
     Route: 048
     Dates: start: 20210317
  5. BOSUTINIB [Concomitant]
     Active Substance: BOSUTINIB
     Route: 048
     Dates: start: 20210326, end: 20210405
  6. BOSUTINIB [Concomitant]
     Active Substance: BOSUTINIB
     Route: 048
     Dates: start: 20210412, end: 20210419

REACTIONS (9)
  - Dementia [Unknown]
  - Pyelonephritis [Unknown]
  - Pyrexia [Unknown]
  - Liver disorder [Unknown]
  - Interstitial lung disease [Recovering/Resolving]
  - Dyspnoea [Unknown]
  - Decreased appetite [Unknown]
  - Taste disorder [Unknown]
  - Drug intolerance [Unknown]

NARRATIVE: CASE EVENT DATE: 20210402
